FAERS Safety Report 6775112-8 (Version None)
Quarter: 2010Q2

REPORT INFORMATION
  Report Type: 
  Country: None (occurrence: None)
  Receive Date: 20100617
  Receipt Date: 20100614
  Transmission Date: 20101027
  Serious: Yes (Hospitalization)
  Sender: FDA-Public Use
  Company Number: Z0004477B

PATIENT
  Age: 73 Year
  Sex: Male
  Weight: 68.1 kg

DRUGS (5)
  1. FLUTICASONE FUROATE [Suspect]
     Indication: CHRONIC OBSTRUCTIVE PULMONARY DISEASE
     Dosage: 200MCG PER DAY
     Route: 055
     Dates: start: 20100526, end: 20100604
  2. MICARDIS [Concomitant]
     Indication: HYPERTENSION
     Dosage: 80MG PER DAY
     Route: 048
     Dates: start: 20100512, end: 20100530
  3. METOPROLOL [Concomitant]
     Indication: HYPERTENSION
     Dosage: 50MG PER DAY
     Route: 048
     Dates: start: 20060101
  4. NORVASC [Concomitant]
     Indication: HYPERTENSION
     Dosage: 5MG PER DAY
     Route: 048
     Dates: start: 20090101, end: 20090530
  5. HYDROCHLOROTHIAZIDE [Concomitant]
     Dosage: 25MG PER DAY
     Route: 048
     Dates: start: 20100529, end: 20100530

REACTIONS (1)
  - ATRIAL FIBRILLATION [None]
